FAERS Safety Report 21586694 (Version 2)
Quarter: 2022Q4

REPORT INFORMATION
  Report Type: Spontaneous
  Country: ES (occurrence: ES)
  Receive Date: 20221113
  Receipt Date: 20221118
  Transmission Date: 20230112
  Serious: Yes (Other)
  Sender: FDA-Public Use
  Company Number: ES-AUROBINDO-AUR-APL-2022-046099

PATIENT
  Age: 46 Year
  Sex: Female

DRUGS (4)
  1. LINEZOLID [Suspect]
     Active Substance: LINEZOLID
     Indication: Staphylococcal infection
     Dosage: UNK
     Route: 048
  2. VANCOMYCIN [Suspect]
     Active Substance: VANCOMYCIN
     Indication: Staphylococcal infection
     Dosage: UNK
     Route: 065
  3. DAPTOMYCIN [Suspect]
     Active Substance: DAPTOMYCIN
     Indication: Staphylococcal infection
     Dosage: UNK
     Route: 065
  4. MINOCYCLINE [Concomitant]
     Active Substance: MINOCYCLINE HYDROCHLORIDE
     Indication: Staphylococcal infection
     Dosage: UNK
     Route: 065

REACTIONS (2)
  - Haematotoxicity [Unknown]
  - Skin toxicity [Unknown]
